FAERS Safety Report 9051416 (Version 1)
Quarter: 2013Q1

REPORT INFORMATION
  Report Type: Spontaneous
  Country: US (occurrence: US)
  Receive Date: 20130206
  Receipt Date: 20130206
  Transmission Date: 20140127
  Serious: No
  Sender: FDA-Public Use
  Company Number: US-ALLERGAN-1207214US

PATIENT
  Age: 61 Year
  Sex: Male

DRUGS (5)
  1. RESTASIS [Suspect]
     Indication: DRY EYE
     Dosage: 2 GTT, BID
     Route: 047
     Dates: start: 201205
  2. ZESTORETIC [Concomitant]
     Indication: HYPERTENSION
     Dosage: UNK
     Route: 048
  3. ZOCOR [Concomitant]
     Indication: BLOOD CHOLESTEROL INCREASED
     Dosage: UNK
     Route: 048
  4. SMOOTHE EYE DROPS [Concomitant]
     Indication: DRY EYE
     Dosage: 2 GTT, PRN
     Route: 047
  5. GENTEAL                            /00445101/ [Concomitant]
     Indication: DRY EYE
     Dosage: 2 GTT, PRN
     Route: 047

REACTIONS (4)
  - Sensory disturbance [Not Recovered/Not Resolved]
  - Headache [Not Recovered/Not Resolved]
  - Headache [Not Recovered/Not Resolved]
  - Therapeutic response decreased [Unknown]
